FAERS Safety Report 4530730-2 (Version None)
Quarter: 2004Q4

REPORT INFORMATION
  Report Type: 
  Country: None (occurrence: None)
  Receive Date: 20041217
  Receipt Date: 20041210
  Transmission Date: 20050328
  Serious: Yes (Hospitalization)
  Sender: FDA-Public Use
  Company Number: JP-GLAXOSMITHKLINE-B0361798A

PATIENT
  Age: 75 Year
  Sex: Male

DRUGS (3)
  1. VALTREX [Suspect]
     Indication: HERPES ZOSTER
     Dosage: 1000MG THREE TIMES PER DAY
     Route: 048
     Dates: start: 20041102, end: 20041109
  2. LOXONIN [Suspect]
     Route: 048
  3. TRYPTANOL [Concomitant]
     Route: 048

REACTIONS (1)
  - LIVER DISORDER [None]
